FAERS Safety Report 11605544 (Version 1)
Quarter: 2015Q3

REPORT INFORMATION
  Report Type: Spontaneous
  Country: US (occurrence: US)
  Receive Date: 20150916
  Receipt Date: 20150916
  Transmission Date: 20151125
  Serious: No
  Sender: FDA-Public Use
  Company Number: US-ELI_LILLY_AND_COMPANY-US201403010345

PATIENT
  Age: 50 Year
  Sex: Female

DRUGS (2)
  1. HUMALOG MIX75/25 [Suspect]
     Active Substance: INSULIN LISPRO
     Indication: DIABETES MELLITUS
     Dosage: 30 DF, EACH MORNING
     Route: 065
     Dates: start: 20140305
  2. HUMALOG MIX75/25 [Suspect]
     Active Substance: INSULIN LISPRO
     Dosage: 20 DF, EACH EVENING
     Route: 065
     Dates: start: 20140305

REACTIONS (2)
  - Blood glucose abnormal [Unknown]
  - Injection site bruising [Unknown]

NARRATIVE: CASE EVENT DATE: 201403
